FAERS Safety Report 5924115-1 (Version None)
Quarter: 2008Q4

REPORT INFORMATION
  Report Type: 
  Country: None (occurrence: None)
  Receive Date: 20081020
  Receipt Date: 20080830
  Transmission Date: 20090506
  Serious: Yes (Other)
  Sender: FDA-Public Use
  Company Number: PHHY2008BR19911

PATIENT
  Age: 45 Year
  Sex: Female

DRUGS (1)
  1. EXFORGE [Suspect]
     Dosage: 160/10 MG

REACTIONS (5)
  - DRY MOUTH [None]
  - OEDEMA PERIPHERAL [None]
  - SALIVA ALTERED [None]
  - SWELLING FACE [None]
  - URINE OUTPUT DECREASED [None]
